FAERS Safety Report 6786595-1 (Version None)
Quarter: 2010Q2

REPORT INFORMATION
  Report Type: 
  Country: None (occurrence: None)
  Receive Date: 20100623
  Receipt Date: 20100622
  Transmission Date: 20101027
  Serious: No
  Sender: FDA-Public Use
  Company Number: US-ROXANE LABORATORIES, INC.-2010-RO-00566RO

PATIENT
  Sex: Male

DRUGS (1)
  1. FLUTICASONE [Suspect]
     Indication: INCREASED UPPER AIRWAY SECRETION
     Route: 055
     Dates: start: 20100509, end: 20100511

REACTIONS (4)
  - DRUG INEFFECTIVE [None]
  - EYE INFECTION [None]
  - NASAL DISCOMFORT [None]
  - SINUSITIS [None]
